FAERS Safety Report 4487259-X (Version None)
Quarter: 2004Q4

REPORT INFORMATION
  Report Type: 
  Country: None (occurrence: None)
  Receive Date: 20041022
  Receipt Date: 20041011
  Transmission Date: 20050328
  Serious: Yes (Hospitalization)
  Sender: FDA-Public Use
  Company Number: 2004EU001873

PATIENT
  Age: 18 Year
  Sex: Male

DRUGS (3)
  1. PROGRAF [Suspect]
     Indication: RENAL TRANSPLANT
     Dosage: /D
     Dates: start: 20011101, end: 20011201
  2. CORTICOSTEROIDS [Concomitant]
  3. MONOCLONAL ANTIBODIES [Concomitant]

REACTIONS (3)
  - EPILEPSY [None]
  - RENAL FAILURE ACUTE [None]
  - RHABDOMYOLYSIS [None]
